FAERS Safety Report 23767828 (Version 1)
Quarter: 2024Q2

REPORT INFORMATION
  Report Type: Spontaneous
  Country: US (occurrence: US)
  Receive Date: 20240422
  Receipt Date: 20240422
  Transmission Date: 20240716
  Serious: No
  Sender: FDA-Public Use
  Company Number: US-PADAGIS-2024PAD00617

PATIENT

DRUGS (1)
  1. EVAMIST [Suspect]
     Active Substance: ESTRADIOL
     Indication: Menopause
     Dosage: UNK, (FOREARM)
     Route: 065
     Dates: start: 202311, end: 2024

REACTIONS (4)
  - Urticaria [None]
  - Application site pruritus [None]
  - Application site rash [None]
  - Product administered at inappropriate site [Unknown]

NARRATIVE: CASE EVENT DATE: 20240101
